FAERS Safety Report 15450354 (Version 2)
Quarter: 2018Q4

REPORT INFORMATION
  Report Type: Spontaneous
  Country: BR (occurrence: BR)
  Receive Date: 20181001
  Receipt Date: 20181012
  Transmission Date: 20190204
  Serious: No
  Sender: FDA-Public Use
  Company Number: BR-009507513-1809BRA013129

PATIENT
  Age: 65 Year
  Sex: Male
  Weight: 89 kg

DRUGS (2)
  1. ZETIA [Suspect]
     Active Substance: EZETIMIBE
     Indication: HEPATIC STEATOSIS
     Dosage: 10 MG, 1 TABLET DAILY
     Route: 048
     Dates: start: 201808, end: 201809
  2. EUROFARMA FORFIG [Concomitant]
     Dosage: 1 TABLET (200 MG) TWICE DAILY
     Dates: start: 2013

REACTIONS (5)
  - Pain [Recovering/Resolving]
  - Fatigue [Recovering/Resolving]
  - Asthenia [Recovering/Resolving]
  - Product use in unapproved indication [Unknown]
  - Somnolence [Recovering/Resolving]

NARRATIVE: CASE EVENT DATE: 2018
